FAERS Safety Report 5893105-X (Version None)
Quarter: 2008Q3

REPORT INFORMATION
  Report Type: 
  Country: None (occurrence: None)
  Receive Date: 20080919
  Receipt Date: 20080904
  Transmission Date: 20090109
  Serious: Yes (Disabling)
  Sender: FDA-Public Use
  Company Number: 2008S1016207

PATIENT
  Age: 75 Year
  Sex: Male

DRUGS (7)
  1. OMEPRAZOLE [Suspect]
     Indication: GASTROOESOPHAGEAL REFLUX DISEASE
     Dosage: 40 MG; ORAL
     Route: 048
     Dates: start: 20071201
  2. ASPIRIN [Concomitant]
  3. BENDROFLUAZIDE [Concomitant]
  4. BISOPROLOL [Concomitant]
  5. OMACOR [Concomitant]
  6. CHLORPHENIRAMINE MALEATE [Concomitant]
  7. SIMVASTATIN [Concomitant]

REACTIONS (1)
  - RETINAL ARTERY OCCLUSION [None]
